FAERS Safety Report 23276508 (Version 2)
Quarter: 2024Q1

REPORT INFORMATION
  Report Type: Report from Study
  Country: FR (occurrence: FR)
  Receive Date: 20231208
  Receipt Date: 20240320
  Transmission Date: 20240409
  Serious: Yes (Death, Hospitalization, Other)
  Sender: FDA-Public Use
  Company Number: FR-TAKEDA-2023TUS118321

PATIENT
  Age: 50 Year
  Sex: Female

DRUGS (32)
  1. TEDUGLUTIDE [Suspect]
     Active Substance: TEDUGLUTIDE
     Indication: Short-bowel syndrome
     Dosage: 2.4 MILLIGRAM, QD
     Route: 042
     Dates: start: 20171106, end: 20171130
  2. TEDUGLUTIDE [Suspect]
     Active Substance: TEDUGLUTIDE
     Indication: Short-bowel syndrome
     Dosage: 2.4 MILLIGRAM, QD
     Route: 042
     Dates: start: 20171106, end: 20171130
  3. TEDUGLUTIDE [Suspect]
     Active Substance: TEDUGLUTIDE
     Indication: Short-bowel syndrome
     Dosage: 2.4 MILLIGRAM, QD
     Route: 042
     Dates: start: 20171106, end: 20171130
  4. TEDUGLUTIDE [Suspect]
     Active Substance: TEDUGLUTIDE
     Indication: Short-bowel syndrome
     Dosage: 2.4 MILLIGRAM, QD
     Route: 042
     Dates: start: 20171106, end: 20171130
  5. TEDUGLUTIDE [Suspect]
     Active Substance: TEDUGLUTIDE
     Dosage: 2.6 MILLIGRAM, QD
     Route: 042
     Dates: start: 20171201, end: 20180705
  6. TEDUGLUTIDE [Suspect]
     Active Substance: TEDUGLUTIDE
     Dosage: 2.6 MILLIGRAM, QD
     Route: 042
     Dates: start: 20171201, end: 20180705
  7. TEDUGLUTIDE [Suspect]
     Active Substance: TEDUGLUTIDE
     Dosage: 2.6 MILLIGRAM, QD
     Route: 042
     Dates: start: 20171201, end: 20180705
  8. TEDUGLUTIDE [Suspect]
     Active Substance: TEDUGLUTIDE
     Dosage: 2.6 MILLIGRAM, QD
     Route: 042
     Dates: start: 20171201, end: 20180705
  9. TEDUGLUTIDE [Suspect]
     Active Substance: TEDUGLUTIDE
     Dosage: 2.4 MILLIGRAM, QD
     Route: 042
     Dates: start: 20180706, end: 20190221
  10. TEDUGLUTIDE [Suspect]
     Active Substance: TEDUGLUTIDE
     Dosage: 2.4 MILLIGRAM, QD
     Route: 042
     Dates: start: 20180706, end: 20190221
  11. TEDUGLUTIDE [Suspect]
     Active Substance: TEDUGLUTIDE
     Dosage: 2.4 MILLIGRAM, QD
     Route: 042
     Dates: start: 20180706, end: 20190221
  12. TEDUGLUTIDE [Suspect]
     Active Substance: TEDUGLUTIDE
     Dosage: 2.4 MILLIGRAM, QD
     Route: 042
     Dates: start: 20180706, end: 20190221
  13. TEDUGLUTIDE [Suspect]
     Active Substance: TEDUGLUTIDE
     Dosage: 2.6 MILLIGRAM, QD
     Route: 042
     Dates: start: 20190222, end: 20190620
  14. TEDUGLUTIDE [Suspect]
     Active Substance: TEDUGLUTIDE
     Dosage: 2.6 MILLIGRAM, QD
     Route: 042
     Dates: start: 20190222, end: 20190620
  15. TEDUGLUTIDE [Suspect]
     Active Substance: TEDUGLUTIDE
     Dosage: 2.6 MILLIGRAM, QD
     Route: 042
     Dates: start: 20190222, end: 20190620
  16. TEDUGLUTIDE [Suspect]
     Active Substance: TEDUGLUTIDE
     Dosage: 2.6 MILLIGRAM, QD
     Route: 042
     Dates: start: 20190222, end: 20190620
  17. TEDUGLUTIDE [Suspect]
     Active Substance: TEDUGLUTIDE
     Dosage: 2.4 MILLIGRAM, QD
     Route: 042
     Dates: start: 20190621, end: 20200921
  18. TEDUGLUTIDE [Suspect]
     Active Substance: TEDUGLUTIDE
     Dosage: 2.4 MILLIGRAM, QD
     Route: 042
     Dates: start: 20190621, end: 20200921
  19. TEDUGLUTIDE [Suspect]
     Active Substance: TEDUGLUTIDE
     Dosage: 2.4 MILLIGRAM, QD
     Route: 042
     Dates: start: 20190621, end: 20200921
  20. TEDUGLUTIDE [Suspect]
     Active Substance: TEDUGLUTIDE
     Dosage: 2.4 MILLIGRAM, QD
     Route: 042
     Dates: start: 20190621, end: 20200921
  21. TEDUGLUTIDE [Suspect]
     Active Substance: TEDUGLUTIDE
     Dosage: 2.2 MILLIGRAM, QD
     Route: 042
     Dates: start: 20200922, end: 202011
  22. TEDUGLUTIDE [Suspect]
     Active Substance: TEDUGLUTIDE
     Dosage: 2.2 MILLIGRAM, QD
     Route: 042
     Dates: start: 20200922, end: 202011
  23. TEDUGLUTIDE [Suspect]
     Active Substance: TEDUGLUTIDE
     Dosage: 2.2 MILLIGRAM, QD
     Route: 042
     Dates: start: 20200922, end: 202011
  24. TEDUGLUTIDE [Suspect]
     Active Substance: TEDUGLUTIDE
     Dosage: 2.2 MILLIGRAM, QD
     Route: 042
     Dates: start: 20200922, end: 202011
  25. TEDUGLUTIDE [Suspect]
     Active Substance: TEDUGLUTIDE
     Dosage: 2.4 MILLIGRAM, QD
     Route: 042
     Dates: start: 202011
  26. TEDUGLUTIDE [Suspect]
     Active Substance: TEDUGLUTIDE
     Dosage: 2.4 MILLIGRAM, QD
     Route: 042
     Dates: start: 202011
  27. TEDUGLUTIDE [Suspect]
     Active Substance: TEDUGLUTIDE
     Dosage: 2.4 MILLIGRAM, QD
     Route: 042
     Dates: start: 202011
  28. TEDUGLUTIDE [Suspect]
     Active Substance: TEDUGLUTIDE
     Dosage: 2.4 MILLIGRAM, QD
     Route: 042
     Dates: start: 202011
  29. RETINOL [Concomitant]
     Active Substance: RETINOL
     Indication: Product used for unknown indication
     Dosage: 2 DOSAGE FORM, QD
     Route: 048
     Dates: start: 20220509
  30. FOLIC ACID [Concomitant]
     Active Substance: FOLIC ACID
     Indication: Vitamin B12 deficiency
     Dosage: UNK UNK, 1/WEEK
     Route: 048
     Dates: start: 20220509
  31. SELENIUM [Concomitant]
     Active Substance: SELENIUM
     Indication: Product used for unknown indication
     Dosage: 1 DOSAGE FORM, QOD
     Route: 048
     Dates: start: 20220509
  32. PHYTONADIONE [Concomitant]
     Active Substance: PHYTONADIONE
     Indication: Product used for unknown indication
     Dosage: 1 DOSAGE FORM, 1/WEEK
     Route: 048
     Dates: start: 20220509

REACTIONS (1)
  - Hepatitis alcoholic [Fatal]

NARRATIVE: CASE EVENT DATE: 20231001
